FAERS Safety Report 8299163-X (Version None)
Quarter: 2012Q2

REPORT INFORMATION
  Report Type: 
  Country: None (occurrence: None)
  Receive Date: 20120419
  Receipt Date: 20120409
  Transmission Date: 20120825
  Serious: Yes (Other)
  Sender: FDA-Public Use
  Company Number: NL-ACTELION-A-CH2012-64014

PATIENT
  Sex: Male
  Weight: 51 kg

DRUGS (2)
  1. ZAVESCA [Suspect]
     Indication: NIEMANN-PICK DISEASE
     Dosage: 200 MG, BID
     Route: 048
     Dates: start: 20040617
  2. ANTIEPILEPTICS [Concomitant]
     Dosage: UNK
     Dates: start: 20070901

REACTIONS (3)
  - CONVULSION [None]
  - CONDITION AGGRAVATED [None]
  - DIARRHOEA [None]
